FAERS Safety Report 5889042-7 (Version None)
Quarter: 2008Q3

REPORT INFORMATION
  Report Type: 
  Country: None (occurrence: None)
  Receive Date: 20080919
  Receipt Date: 20080220
  Transmission Date: 20090109
  Serious: No
  Sender: FDA-Public Use
  Company Number: US-KINGPHARMUSA00001-K200800224

PATIENT

DRUGS (1)
  1. SONATA [Suspect]
     Indication: INSOMNIA
     Dosage: UNK, SINGLE
     Route: 048
     Dates: start: 20080201, end: 20080201

REACTIONS (4)
  - CHEST PAIN [None]
  - DIZZINESS [None]
  - DYSPNOEA [None]
  - HYPERSENSITIVITY [None]
